FAERS Safety Report 4395427-0 (Version None)
Quarter: 2004Q3

REPORT INFORMATION
  Report Type: 
  Country: None (occurrence: None)
  Receive Date: 20040709
  Receipt Date: 20040626
  Transmission Date: 20050211
  Serious: Yes (Other)
  Sender: FDA-Public Use
  Company Number: 2004043468

PATIENT
  Age: 28 Year
  Sex: Female
  Weight: 83.0083 kg

DRUGS (4)
  1. ZOLOFT [Suspect]
     Indication: DEPRESSION
     Dosage: 150 MG (1 D), ORAL
     Route: 048
     Dates: start: 20021101
  2. LORATADINE [Concomitant]
  3. ALL OTHER THERAPEUTIC PRODUCTS (ALL OTHER THERAPEUTIC PRODUCTS) [Concomitant]
  4. BENADRYL [Concomitant]

REACTIONS (2)
  - COELIAC DISEASE [None]
  - INSOMNIA [None]
